FAERS Safety Report 9536725 (Version 1)
Quarter: 2013Q3

REPORT INFORMATION
  Report Type: Spontaneous
  Country: BR (occurrence: BR)
  Receive Date: 20130919
  Receipt Date: 20130919
  Transmission Date: 20140515
  Serious: Yes (Hospitalization)
  Sender: FDA-Public Use
  Company Number: BR-PFIZER INC-2013266982

PATIENT
  Age: 83 Year
  Sex: Female
  Weight: 57 kg

DRUGS (5)
  1. LYRICA [Suspect]
     Indication: SPINAL PAIN
     Dosage: 1 TABLET OF STRENGTH 75 MG (AS REPORTED), 2X/DAY EVERY 12 HOURS
     Route: 048
     Dates: start: 20130903, end: 201309
  2. AAS [Concomitant]
     Indication: VASCULAR GRAFT
     Dosage: 2 TABLETS DAILY
     Dates: start: 2007
  3. CARVEDILOL [Concomitant]
     Indication: VASCULAR GRAFT
     Dosage: 50 MG/DAY
     Dates: start: 2007
  4. VYTORIN [Concomitant]
     Indication: VASCULAR GRAFT
     Dosage: 20 MG DAILY
     Dates: start: 2007
  5. ENALAPRIL [Concomitant]
     Indication: CARDIAC DISORDER
     Dosage: 1 UNIT, DAILY
     Dates: start: 2007

REACTIONS (5)
  - Hypersensitivity [Recovered/Resolved]
  - Nasal oedema [Recovered/Resolved]
  - Oedema peripheral [Recovered/Resolved]
  - Swelling face [Recovered/Resolved]
  - Back pain [Unknown]
